FAERS Safety Report 9757304 (Version 3)
Quarter: 2013Q4

REPORT INFORMATION
  Report Type: Spontaneous
  Country: US (occurrence: US)
  Receive Date: 20131214
  Receipt Date: 20131223
  Transmission Date: 20140711
  Serious: Yes (Hospitalization, Other)
  Sender: FDA-Public Use
  Company Number: US-JNJFOC-20131208411

PATIENT
  Age: 71 Year
  Sex: Male
  Weight: 113.4 kg

DRUGS (7)
  1. ZYRTEC 10MG IR TABLET BONUS 30+10 USA [Suspect]
     Route: 048
  2. ZYRTEC 10MG IR TABLET BONUS 30+10 USA [Suspect]
     Indication: PRURITUS
     Dosage: 1/2 PILL
     Route: 048
     Dates: start: 20130701, end: 20131118
  3. TYLENOL [Concomitant]
     Indication: PRODUCT USED FOR UNKNOWN INDICATION
     Dosage: OCCASIONALLY
     Route: 065
  4. COUMADIN [Concomitant]
     Indication: ANTICOAGULANT THERAPY
     Route: 065
     Dates: start: 1989
  5. ALLOPURINOL [Concomitant]
     Indication: NEPHROLITHIASIS
     Dosage: OVER 12 YEARS.
     Route: 065
  6. UROCIT K [Concomitant]
     Indication: BLOOD URIC ACID
     Dosage: OVER 12 YEARS
     Route: 065
  7. COREG [Concomitant]
     Indication: BLOOD PRESSURE
     Route: 065
     Dates: start: 20131120

REACTIONS (4)
  - Myocardial infarction [Recovered/Resolved]
  - Diverticulitis [Not Recovered/Not Resolved]
  - Angina pectoris [None]
  - Product quality issue [None]
